FAERS Safety Report 7956761-8 (Version None)
Quarter: 2011Q4

REPORT INFORMATION
  Report Type: 
  Country: None (occurrence: None)
  Receive Date: 20111205
  Receipt Date: 20111201
  Transmission Date: 20120403
  Serious: No
  Sender: FDA-Public Use
  Company Number: US-B.I. PHARMACEUTICALS,INC./RIDGEFIELD-2011-BP-27275BP

PATIENT
  Age: 60 Year
  Sex: Male

DRUGS (3)
  1. STATIN [Concomitant]
  2. METFORMIN HCL [Concomitant]
  3. TRADJENTA [Suspect]

REACTIONS (1)
  - RASH [None]
